FAERS Safety Report 4288198-X (Version None)
Quarter: 2004Q1

REPORT INFORMATION
  Report Type: 
  Country: None (occurrence: None)
  Receive Date: 20040205
  Receipt Date: 20040126
  Transmission Date: 20041129
  Serious: Yes (Hospitalization)
  Sender: FDA-Public Use
  Company Number: CA-JNJFOC-20040105685

PATIENT
  Age: 44 Year
  Sex: Female

DRUGS (3)
  1. REMICADE [Suspect]
     Indication: RHEUMATOID ARTHRITIS
     Dosage: 200-100MG Q8WEEKS
     Dates: start: 20010426
  2. REMICADE [Suspect]
     Indication: RHEUMATOID ARTHRITIS
     Dosage: 200-100MG Q8WEEKS
     Dates: start: 20031023
  3. REMICADE [Suspect]
     Indication: RHEUMATOID ARTHRITIS
     Dosage: 200-100MG Q8WEEKS
     Dates: start: 20031202

REACTIONS (4)
  - CELLULITIS [None]
  - HYPOAESTHESIA [None]
  - MYELOPATHY [None]
  - SPINAL CORD COMPRESSION [None]
